FAERS Safety Report 25003446 (Version 2)
Quarter: 2025Q1

REPORT INFORMATION
  Report Type: Spontaneous
  Country: FR (occurrence: FR)
  Receive Date: 20250224
  Receipt Date: 20250303
  Transmission Date: 20250409
  Serious: Yes (Hospitalization, Other)
  Sender: REGENERON
  Company Number: FR-BAYER-2025A024035

PATIENT
  Sex: Female

DRUGS (1)
  1. EYLEA HD [Suspect]
     Active Substance: AFLIBERCEPT
     Indication: Diabetic retinal oedema

REACTIONS (3)
  - Vitritis [Recovering/Resolving]
  - Endophthalmitis [Recovering/Resolving]
  - Anterior chamber inflammation [Recovering/Resolving]
